FAERS Safety Report 8294777-5 (Version None)
Quarter: 2012Q2

REPORT INFORMATION
  Report Type: 
  Country: None (occurrence: None)
  Receive Date: 20120418
  Receipt Date: 20120411
  Transmission Date: 20120825
  Serious: Yes (Hospitalization)
  Sender: FDA-Public Use
  Company Number: JP-PFIZER INC-2012054470

PATIENT
  Age: 58 Year
  Sex: Female
  Weight: 57 kg

DRUGS (4)
  1. ENBREL [Suspect]
     Indication: RHEUMATOID ARTHRITIS
     Dosage: 25 MG, UNK
     Route: 058
  2. RHEUMATREX [Suspect]
     Dosage: UNK
     Route: 048
  3. FOLIAMIN [Concomitant]
     Dosage: UNK
  4. RISEDRONATE SODIUM [Concomitant]
     Indication: OSTEOPOROSIS
     Dosage: UNK

REACTIONS (2)
  - POLYMYOSITIS [None]
  - LIVER DISORDER [None]
